FAERS Safety Report 23963964 (Version 2)
Quarter: 2024Q2

REPORT INFORMATION
  Report Type: Other
  Country: US (occurrence: US)
  Receive Date: 20240611
  Receipt Date: 20240612
  Transmission Date: 20240716
  Serious: Yes (Other)
  Sender: FDA-Public Use
  Company Number: US-HLS-202400160

PATIENT
  Age: 21 Year
  Sex: Female

DRUGS (1)
  1. CLOZAPINE [Suspect]
     Active Substance: CLOZAPINE
     Indication: Schizophrenia
     Route: 065

REACTIONS (4)
  - Hallucination, auditory [Recovered/Resolved]
  - Paraesthesia [Recovered/Resolved]
  - Schizophrenia [Recovered/Resolved]
  - Hallucination, tactile [Recovered/Resolved]
